FAERS Safety Report 25192202 (Version 1)
Quarter: 2025Q2

REPORT INFORMATION
  Report Type: Spontaneous
  Country: US (occurrence: US)
  Receive Date: 20250414
  Receipt Date: 20250414
  Transmission Date: 20250717
  Serious: Yes (Other)
  Sender: GALPHARM INTERNATIONAL
  Company Number: US-PERRIGO-25US004398

PATIENT
  Sex: Female

DRUGS (1)
  1. OPILL [Suspect]
     Active Substance: NORGESTREL
     Indication: Oral contraception
     Route: 048

REACTIONS (2)
  - Suicidal ideation [Unknown]
  - Alopecia [Unknown]
